FAERS Safety Report 16209022 (Version 2)
Quarter: 2019Q3

REPORT INFORMATION
  Report Type: Spontaneous
  Country: US (occurrence: US)
  Receive Date: 20190417
  Receipt Date: 20190925
  Transmission Date: 20191004
  Serious: Yes (Other)
  Sender: FDA-Public Use
  Company Number: US-ASCEND THERAPEUTICS-2065971

PATIENT
  Age: 65 Year
  Sex: Female

DRUGS (2)
  1. ESTROGEL [Suspect]
     Active Substance: ESTRADIOL
     Indication: HORMONE REPLACEMENT THERAPY
     Route: 062
  2. ESTRADIOL. [Suspect]
     Active Substance: ESTRADIOL
     Route: 062
     Dates: start: 20190212

REACTIONS (7)
  - Appendicitis [Unknown]
  - Product quality issue [None]
  - Hernia [Unknown]
  - Hot flush [Unknown]
  - Malaise [Unknown]
  - Drug ineffective [None]
  - Product adhesion issue [None]
